FAERS Safety Report 7924008-4 (Version None)
Quarter: 2011Q4

REPORT INFORMATION
  Report Type: 
  Country: None (occurrence: None)
  Receive Date: 20111117
  Receipt Date: 20110211
  Transmission Date: 20120403
  Serious: No
  Sender: FDA-Public Use
  Company Number: US-AMGEN-USASP2011008199

PATIENT
  Age: 65 Year
  Sex: Female

DRUGS (2)
  1. ENBREL [Suspect]
     Indication: PSORIATIC ARTHROPATHY
     Dates: start: 20100111, end: 20110124
  2. ENBREL [Suspect]
     Indication: PSORIASIS

REACTIONS (6)
  - SUBCUTANEOUS NODULE [None]
  - CHAPPED LIPS [None]
  - ERYTHEMA [None]
  - LIP SWELLING [None]
  - RASH [None]
  - PAIN [None]
